FAERS Safety Report 25899651 (Version 1)
Quarter: 2025Q4

REPORT INFORMATION
  Report Type: Spontaneous
  Country: EG (occurrence: EG)
  Receive Date: 20251009
  Receipt Date: 20251009
  Transmission Date: 20260119
  Serious: Yes (Other)
  Sender: SETON PHARMACEUTICALS
  Company Number: EG-SETONPHARMA-2025SETLIT00013

PATIENT
  Age: 27 Year
  Sex: Female
  Weight: 52 kg

DRUGS (2)
  1. PREDNISOLONE [Suspect]
     Active Substance: PREDNISOLONE
     Indication: Underweight
     Route: 048
  2. PREDNISOLONE [Suspect]
     Active Substance: PREDNISOLONE

REACTIONS (3)
  - Adrenal insufficiency [Unknown]
  - Ulcerative keratitis [Recovering/Resolving]
  - Drug abuse [Unknown]
